FAERS Safety Report 4979347-6 (Version None)
Quarter: 2006Q2

REPORT INFORMATION
  Report Type: 
  Country: None (occurrence: None)
  Receive Date: 20060421
  Receipt Date: 20051216
  Transmission Date: 20061013
  Serious: Yes (Death, Hospitalization)
  Sender: FDA-Public Use
  Company Number: US-MERCK-0512USA02745

PATIENT
  Age: 62 Year
  Sex: Female
  Weight: 55 kg

DRUGS (1)
  1. VIOXX [Suspect]
     Indication: PAIN
     Route: 048
     Dates: start: 19991228, end: 20021214

REACTIONS (9)
  - CORONARY ARTERY DISEASE [None]
  - DUODENAL ULCER PERFORATION [None]
  - INJURY [None]
  - ISCHAEMIA [None]
  - MYOCARDIAL INFARCTION [None]
  - PULMONARY OEDEMA [None]
  - RESPIRATORY DISTRESS [None]
  - THROMBOSIS [None]
  - UNRESPONSIVE TO PAIN STIMULI [None]
